FAERS Safety Report 24582031 (Version 2)
Quarter: 2024Q4

REPORT INFORMATION
  Report Type: Spontaneous
  Country: RU (occurrence: RU)
  Receive Date: 20241105
  Receipt Date: 20241129
  Transmission Date: 20250115
  Serious: Yes (Hospitalization, Other)
  Sender: JOHNSON AND JOHNSON
  Company Number: RU-BAYER-2024A156561

PATIENT
  Age: 60 Year
  Sex: Male
  Weight: 72 kg

DRUGS (4)
  1. XARELTO [Suspect]
     Active Substance: RIVAROXABAN
     Indication: Arteriosclerosis
     Dosage: 15 MG, QD
     Route: 048
     Dates: start: 202402, end: 20241015
  2. XARELTO [Suspect]
     Active Substance: RIVAROXABAN
     Dosage: UNK
     Route: 048
     Dates: start: 202402, end: 20241015
  3. ASPIRIN [Suspect]
     Active Substance: ASPIRIN
     Indication: Arteriosclerosis
     Dosage: 125 MG, QD
     Route: 048
     Dates: start: 202402, end: 20241015
  4. ASPIRIN [Suspect]
     Active Substance: ASPIRIN
     Dosage: 50 MG, QD
     Route: 048
     Dates: start: 202402, end: 20241015

REACTIONS (7)
  - Fibrosing colonopathy [Not Recovered/Not Resolved]
  - Gastrointestinal disorder [Not Recovered/Not Resolved]
  - Chronic gastritis [Unknown]
  - Gastrooesophageal sphincter insufficiency [Unknown]
  - Colitis ulcerative [Unknown]
  - Haemorrhoids [Unknown]
  - Product prescribing issue [Unknown]

NARRATIVE: CASE EVENT DATE: 20241013
